FAERS Safety Report 9732501 (Version 1)
Quarter: 2013Q4

REPORT INFORMATION
  Report Type: Spontaneous
  Country: US (occurrence: US)
  Receive Date: 20131205
  Receipt Date: 20131205
  Transmission Date: 20140711
  Serious: Yes (Other)
  Sender: FDA-Public Use
  Company Number: US-TEVA-448946USA

PATIENT
  Age: 28 Year
  Sex: Male

DRUGS (2)
  1. FENTANYL [Suspect]
     Route: 051
  2. LIDOCAINE [Suspect]
     Route: 051

REACTIONS (7)
  - Respiratory depression [Recovered/Resolved]
  - Cyanosis [Recovered/Resolved]
  - Tachycardia [Recovered/Resolved]
  - Lethargy [Recovered/Resolved]
  - Somnolence [Recovered/Resolved]
  - Miosis [Recovered/Resolved]
  - Intentional drug misuse [Unknown]
